FAERS Safety Report 5399953-7 (Version None)
Quarter: 2007Q3

REPORT INFORMATION
  Report Type: 
  Country: None (occurrence: None)
  Receive Date: 20070730
  Receipt Date: 20070719
  Transmission Date: 20080115
  Serious: Yes (Other)
  Sender: FDA-Public Use
  Company Number: US-JNJFOC-20070502896

PATIENT
  Sex: Female

DRUGS (1)
  1. TRAMADOL HCL [Suspect]
     Indication: PAIN
     Route: 048

REACTIONS (2)
  - HYPOGLYCAEMIA [None]
  - ROAD TRAFFIC ACCIDENT [None]
